FAERS Safety Report 7189885-6 (Version None)
Quarter: 2010Q4

REPORT INFORMATION
  Report Type: 
  Country: None (occurrence: None)
  Receive Date: 20101123
  Receipt Date: 20100914
  Transmission Date: 20110411
  Serious: No
  Sender: FDA-Public Use
  Company Number: 018774

PATIENT
  Sex: Female
  Weight: 50.9 kg

DRUGS (13)
  1. CIMZIA [Suspect]
     Indication: CROHN'S DISEASE
     Dosage: 400 MG MONTHLY SUBCUTANEOUS
     Route: 058
     Dates: start: 20100703
  2. LIBRAXIN [Concomitant]
  3. LIDEX [Concomitant]
  4. PANCREASE [Concomitant]
  5. CELEXA [Concomitant]
  6. CHLORDIAZEPOXIDE W/CLIDINIUM [Concomitant]
  7. LORTAB [Concomitant]
  8. PROCARDIA XL [Concomitant]
  9. XANAX [Concomitant]
  10. VITAMIN E [Concomitant]
  11. CALCIUM [Concomitant]
  12. VITAMIN D [Concomitant]
  13. VALTREX [Concomitant]

REACTIONS (7)
  - BLOOD PRESSURE INCREASED [None]
  - INJECTION SITE PAIN [None]
  - INJECTION SITE PRURITUS [None]
  - INJECTION SITE RASH [None]
  - INJECTION SITE SWELLING [None]
  - RASH [None]
  - UNEVALUABLE EVENT [None]
